FAERS Safety Report 21629562 (Version 1)
Quarter: 2022Q4

REPORT INFORMATION
  Report Type: Spontaneous
  Country: US (occurrence: US)
  Receive Date: 20221122
  Receipt Date: 20221122
  Transmission Date: 20230113
  Serious: Yes (Other)
  Sender: FDA-Public Use
  Company Number: US-BAYER-2022P021651

PATIENT
  Age: 27 Year
  Sex: Male

DRUGS (2)
  1. CYPROTERONE ACETATE [Suspect]
     Active Substance: CYPROTERONE ACETATE
     Indication: Transgender hormonal therapy
     Dosage: UNK
  2. ESTRADIOL [Suspect]
     Active Substance: ESTRADIOL
     Indication: Transgender hormonal therapy
     Dosage: UNK

REACTIONS (7)
  - Acute hepatic failure [None]
  - Prescription drug used without a prescription [None]
  - Drug-induced liver injury [None]
  - Intestinal pseudo-obstruction [None]
  - Renal tubular necrosis [None]
  - Acquired phimosis [None]
  - Peritonitis bacterial [None]
